FAERS Safety Report 8837966 (Version 1)
Quarter: 2012Q4

REPORT INFORMATION
  Report Type: 
  Country: FI (occurrence: FI)
  Receive Date: 20121012
  Receipt Date: 20121012
  Transmission Date: 20130627
  Serious: Yes (Hospitalization)
  Sender: FDA-Public Use
  Company Number: FI-ROCHE-1138092

PATIENT
  Age: 48 Year
  Sex: Male

DRUGS (5)
  1. ROACTEMRA [Suspect]
     Indication: RHEUMATOID ARTHRITIS
     Dosage: 640 mg
     Route: 042
     Dates: start: 20120920
  2. SALBUTAMOL [Suspect]
     Indication: ASTHMA
     Route: 065
     Dates: start: 20120920
  3. REUMACON [Concomitant]
     Indication: RHEUMATOID ARTHRITIS
  4. PREDNISONE [Concomitant]
     Indication: RHEUMATOID ARTHRITIS
  5. BURANA [Concomitant]

REACTIONS (2)
  - Atrial fibrillation [Recovered/Resolved]
  - Throat irritation [Recovered/Resolved]
